FAERS Safety Report 18464668 (Version 1)
Quarter: 2020Q4

REPORT INFORMATION
  Report Type: Report from Study
  Country: US (occurrence: US)
  Receive Date: 20201104
  Receipt Date: 20201104
  Transmission Date: 20210114
  Serious: Yes (Other)
  Sender: FDA-Public Use
  Company Number: US-JNJFOC-20201046788

PATIENT
  Sex: Male
  Weight: 9.53 kg

DRUGS (4)
  1. TREPROSTINIL. [Concomitant]
     Active Substance: TREPROSTINIL
  2. SILDENAFIL CITRATE. [Concomitant]
     Active Substance: SILDENAFIL CITRATE
  3. BOSENTAN. [Suspect]
     Active Substance: BOSENTAN
     Indication: PULMONARY ARTERIAL HYPERTENSION
     Dosage: HALF A TABLET TAKEN TWICE DAILY
     Route: 048
  4. REMODULIN [Concomitant]
     Active Substance: TREPROSTINIL

REACTIONS (2)
  - Myelosuppression [Unknown]
  - N-terminal prohormone brain natriuretic peptide increased [Unknown]
